FAERS Safety Report 25263726 (Version 1)
Quarter: 2025Q2

REPORT INFORMATION
  Report Type: Report from Study
  Country: JP (occurrence: JP)
  Receive Date: 20250502
  Receipt Date: 20250502
  Transmission Date: 20250716
  Serious: Yes (Other)
  Sender: ABBVIE
  Company Number: JP-ABBVIE-6255258

PATIENT

DRUGS (1)
  1. VYALEV [Suspect]
     Active Substance: FOSCARBIDOPA\FOSLEVODOPA
     Indication: Parkinson^s disease
     Route: 058
     Dates: start: 202503

REACTIONS (10)
  - Bladder catheterisation [Unknown]
  - On and off phenomenon [Unknown]
  - Bradykinesia [Unknown]
  - Therapeutic product effect incomplete [Unknown]
  - On and off phenomenon [Recovered/Resolved]
  - On and off phenomenon [Unknown]
  - Dysuria [Unknown]
  - Loss of personal independence in daily activities [Unknown]
  - Somnolence [Unknown]
  - Movement disorder [Unknown]

NARRATIVE: CASE EVENT DATE: 20250101
